FAERS Safety Report 21470266 (Version 3)
Quarter: 2022Q4

REPORT INFORMATION
  Report Type: Spontaneous
  Country: CA (occurrence: CA)
  Receive Date: 20221018
  Receipt Date: 20221209
  Transmission Date: 20230113
  Serious: Yes (Other)
  Sender: FDA-Public Use
  Company Number: CA-CELLTRION INC.-2022CA016840

PATIENT

DRUGS (6)
  1. INFLECTRA [Suspect]
     Active Substance: INFLIXIMAB-DYYB
     Indication: Crohn^s disease
     Dosage: 600 MG ,INDUCTION W0, 2, 6 THEN Q 8W
     Route: 042
     Dates: start: 20220822
  2. INFLECTRA [Suspect]
     Active Substance: INFLIXIMAB-DYYB
     Dosage: 600 MG ,INDUCTION W0, 2, 6 THEN Q 8W
     Route: 042
     Dates: start: 20220907
  3. INFLECTRA [Suspect]
     Active Substance: INFLIXIMAB-DYYB
     Dosage: 600 MG ,INDUCTION W0, 2, 6 THEN Q 8W
     Route: 042
     Dates: start: 20221005
  4. INFLECTRA [Suspect]
     Active Substance: INFLIXIMAB-DYYB
     Dosage: 600 MG ,INDUCTION W0, 2, 6 THEN Q 8W
     Route: 042
     Dates: start: 20221129
  5. CIPROFLOXACIN [Concomitant]
     Active Substance: CIPROFLOXACIN
     Dosage: 1 DF ,DOSAGE UNKNOWN
     Route: 065
     Dates: start: 20220720
  6. METRONIDAZOLE [Concomitant]
     Active Substance: METRONIDAZOLE
     Dosage: 1 DF ,DOSAGE UNKNOWN
     Route: 065
     Dates: start: 20220720

REACTIONS (9)
  - Uveitis [Unknown]
  - Drainage [Recovering/Resolving]
  - Condition aggravated [Recovering/Resolving]
  - Arthralgia [Unknown]
  - Anal fissure [Unknown]
  - Abscess [Unknown]
  - Fistula [Unknown]
  - Weight increased [Unknown]
  - Pain [Recovering/Resolving]

NARRATIVE: CASE EVENT DATE: 20220101
